FAERS Safety Report 8031836-6 (Version None)
Quarter: 2012Q1

REPORT INFORMATION
  Report Type: 
  Country: None (occurrence: None)
  Receive Date: 20120109
  Receipt Date: 20120106
  Transmission Date: 20120608
  Serious: Yes (Death, Hospitalization)
  Sender: FDA-Public Use
  Company Number: US-US-EMD SERONO, INC.-7082199

PATIENT
  Sex: Female
  Weight: 87 kg

DRUGS (29)
  1. REBIF [Suspect]
     Indication: MULTIPLE SCLEROSIS
     Route: 058
     Dates: start: 20020603
  2. VITAMIN C [Concomitant]
     Route: 048
  3. UREX [Concomitant]
     Route: 046
  4. LEVOXYL [Concomitant]
     Route: 048
  5. MULTI-VITAMIN [Concomitant]
  6. FENTANYL [Concomitant]
     Indication: PAIN
     Route: 062
  7. COUMADIN [Concomitant]
     Indication: ATRIAL FIBRILLATION
  8. ATIVAN [Concomitant]
     Indication: ANXIETY
     Route: 046
  9. ADVAIR DISKUS 100/50 [Concomitant]
     Indication: CHRONIC OBSTRUCTIVE PULMONARY DISEASE
  10. FORADIL [Concomitant]
     Indication: CHRONIC OBSTRUCTIVE PULMONARY DISEASE
  11. COZAAR [Concomitant]
     Indication: HYPERTENSION
     Route: 048
  12. OMEPRAZOLE [Concomitant]
     Indication: GASTROOESOPHAGEAL REFLUX DISEASE
  13. OXYGEN [Concomitant]
     Indication: CHRONIC OBSTRUCTIVE PULMONARY DISEASE
  14. PRIMIDONE [Concomitant]
     Route: 048
  15. METOPROLOL SUCCINATE [Concomitant]
     Indication: HYPERTENSION
     Route: 048
  16. DILTIAZEM HCL [Concomitant]
     Indication: HYPERTENSION
  17. REMERON [Concomitant]
     Indication: DEPRESSION
  18. DUONEB [Concomitant]
     Indication: CHRONIC OBSTRUCTIVE PULMONARY DISEASE
  19. FISH OIL [Concomitant]
  20. VICODIN [Concomitant]
     Indication: PAIN
  21. WELLBUTRIN XL [Concomitant]
     Indication: DEPRESSION
  22. NEURONTIN [Concomitant]
     Indication: NEUROPATHY PERIPHERAL
  23. BACLOFEN [Concomitant]
  24. ACETAMINOPHEN [Concomitant]
     Indication: PAIN
     Route: 048
  25. LIPITOR [Concomitant]
     Indication: HYPERLIPIDAEMIA
  26. CLARITIN [Concomitant]
     Indication: HYPERSENSITIVITY
  27. MILK OF MAGNESIA TAB [Concomitant]
     Indication: CONSTIPATION
  28. DIGOXIN [Concomitant]
     Indication: ATRIAL FIBRILLATION
  29. MORPHINE SULFATE [Concomitant]
     Indication: PAIN

REACTIONS (6)
  - CHRONIC OBSTRUCTIVE PULMONARY DISEASE [None]
  - MULTIPLE SCLEROSIS RELAPSE [None]
  - ATRIAL FIBRILLATION [None]
  - MULTIPLE SCLEROSIS [None]
  - RESPIRATORY FAILURE [None]
  - URINARY TRACT INFECTION [None]
